FAERS Safety Report 21570747 (Version 1)
Quarter: 2022Q4

REPORT INFORMATION
  Report Type: Spontaneous
  Country: US (occurrence: US)
  Receive Date: 20221109
  Receipt Date: 20221109
  Transmission Date: 20230113
  Serious: Yes (Hospitalization, Other)
  Sender: FDA-Public Use
  Company Number: US-PBT-006167

PATIENT
  Age: 43 Year
  Sex: Male

DRUGS (1)
  1. TACROLIMUS [Interacting]
     Active Substance: TACROLIMUS
     Indication: Prophylaxis against transplant rejection
     Route: 065

REACTIONS (9)
  - COVID-19 pneumonia [Unknown]
  - Hyperkalaemia [Unknown]
  - Metabolic acidosis [Unknown]
  - Acute kidney injury [Unknown]
  - Cardiomyopathy [Unknown]
  - Pancytopenia [Unknown]
  - Coagulopathy [Unknown]
  - Toxicity to various agents [Unknown]
  - Drug interaction [Unknown]
